FAERS Safety Report 5945102-3 (Version None)
Quarter: 2008Q4

REPORT INFORMATION
  Report Type: 
  Country: None (occurrence: None)
  Receive Date: 20081107
  Receipt Date: 20081029
  Transmission Date: 20090506
  Serious: Yes (Hospitalization)
  Sender: FDA-Public Use
  Company Number: FR-JNJFOC-20081006663

PATIENT
  Sex: Male

DRUGS (9)
  1. PREZISTA [Suspect]
     Route: 048
  2. PREZISTA [Suspect]
     Indication: HIV INFECTION
     Route: 048
  3. FUZEON [Concomitant]
     Route: 058
  4. FUZEON [Concomitant]
     Indication: HIV INFECTION
     Route: 058
  5. NORVIR [Concomitant]
     Route: 048
  6. NORVIR [Concomitant]
     Indication: HIV INFECTION
     Route: 048
  7. METHADONE HCL [Concomitant]
  8. ACETAMINOPHEN [Concomitant]
     Indication: PAIN
     Route: 065
  9. TOPALGIC [Concomitant]
     Indication: PAIN

REACTIONS (1)
  - PANCREATITIS ACUTE [None]
